FAERS Safety Report 6423531-1 (Version None)
Quarter: 2009Q4

REPORT INFORMATION
  Report Type: 
  Country: None (occurrence: None)
  Receive Date: 20091102
  Receipt Date: 20090202
  Transmission Date: 20100525
  Serious: No
  Sender: FDA-Public Use
  Company Number: A0764171A

PATIENT
  Age: 66 Year
  Sex: Female

DRUGS (4)
  1. RYTHMOL SR [Suspect]
     Dosage: 325MG TWICE PER DAY
     Route: 048
     Dates: start: 20080624
  2. LIPITOR [Concomitant]
     Dosage: 10MG PER DAY
     Route: 048
     Dates: start: 20040301
  3. WARFARIN SODIUM [Concomitant]
     Indication: ATRIAL FIBRILLATION
     Dosage: 4MG PER DAY
     Route: 048
     Dates: start: 20040301, end: 20040401
  4. WARFARIN SODIUM [Concomitant]
     Dosage: 5MG PER DAY
     Route: 048
     Dates: start: 20040401

REACTIONS (1)
  - VISION BLURRED [None]
